FAERS Safety Report 16996121 (Version 1)
Quarter: 2019Q4

REPORT INFORMATION
  Report Type: Spontaneous
  Country: CA (occurrence: CA)
  Receive Date: 20191105
  Receipt Date: 20191105
  Transmission Date: 20200122
  Serious: Yes (Life-Threatening)
  Sender: FDA-Public Use
  Company Number: CA-PFIZER INC-2019472952

PATIENT
  Age: 56 Year
  Sex: Female
  Weight: 53.61 kg

DRUGS (7)
  1. VALIUM [Suspect]
     Active Substance: DIAZEPAM
     Dosage: 5 MG, 1X/DAY
     Route: 048
  2. GABAPENTIN. [Suspect]
     Active Substance: GABAPENTIN
     Dosage: 1200 MG, 1X/DAY
     Route: 048
  3. TRAZODONE [Suspect]
     Active Substance: TRAZODONE HYDROCHLORIDE
     Dosage: 200 MG, 1X/DAY
     Route: 048
  4. CHLORPROMAZINE. [Suspect]
     Active Substance: CHLORPROMAZINE
     Dosage: 150 MG, 1X/DAY
     Route: 048
  5. REMERON [Suspect]
     Active Substance: MIRTAZAPINE
     Dosage: 45 MG, 1X/DAY
     Route: 048
  6. SEROQUEL [Suspect]
     Active Substance: QUETIAPINE FUMARATE
     Dosage: 600 MG, 1X/DAY
     Route: 048
  7. IMOVANE [Suspect]
     Active Substance: ZOPICLONE
     Dosage: 7.5 MG, 1X/DAY
     Route: 048

REACTIONS (6)
  - Electric shock [Not Recovered/Not Resolved]
  - Insomnia [Not Recovered/Not Resolved]
  - Suicidal ideation [Not Recovered/Not Resolved]
  - Condition aggravated [Not Recovered/Not Resolved]
  - Palpitations [Not Recovered/Not Resolved]
  - Anxiety [Not Recovered/Not Resolved]
